FAERS Safety Report 6276039-0 (Version None)
Quarter: 2009Q3

REPORT INFORMATION
  Report Type: 
  Country: None (occurrence: None)
  Receive Date: 20090722
  Receipt Date: 20071226
  Transmission Date: 20100115
  Serious: Yes (Death)
  Sender: FDA-Public Use
  Company Number: US-ASTRAZENECA-2007UW21493

PATIENT
  Age: 6978 Day
  Sex: Male
  Weight: 59 kg

DRUGS (20)
  1. SEROQUEL [Suspect]
     Indication: ANXIETY
     Dosage: 12.5 - 25 MG
     Route: 048
     Dates: start: 20040105
  2. SEROQUEL [Suspect]
     Indication: DEPRESSION
     Dosage: 12.5 - 25 MG
     Route: 048
     Dates: start: 20040105
  3. SEROQUEL [Suspect]
     Dosage: 25 MG 1/2 Q DAY
     Route: 048
  4. SEROQUEL [Suspect]
     Dosage: 25 MG 1/2 Q DAY
     Route: 048
  5. PREDNISONE [Concomitant]
  6. NORVASC [Concomitant]
  7. LABETALOL HCL [Concomitant]
  8. CLONIDINE [Concomitant]
  9. NIFEDIPINE [Concomitant]
  10. PROZAC [Concomitant]
  11. OSCAL PLUS [Concomitant]
  12. PROTONIX [Concomitant]
  13. EPOGEN [Concomitant]
  14. DILANTIN [Concomitant]
  15. LORAZEPAM [Concomitant]
  16. METHOTREXATE [Concomitant]
  17. SEVELAMER [Concomitant]
  18. GLYCOPYRROLATE [Concomitant]
  19. MIRALAX [Concomitant]
  20. IPRATROPIUM BROMIDE [Concomitant]

REACTIONS (3)
  - DEATH [None]
  - DIABETES MELLITUS [None]
  - HYPOGLYCAEMIA [None]
